FAERS Safety Report 15563832 (Version 3)
Quarter: 2018Q4

REPORT INFORMATION
  Report Type: Spontaneous
  Country: NL (occurrence: NL)
  Receive Date: 20181029
  Receipt Date: 20181212
  Transmission Date: 20190205
  Serious: Yes (Other)
  Sender: FDA-Public Use
  Company Number: NL-ABBVIE-18K-114-2534774-00

PATIENT
  Age: 53 Year
  Sex: Male
  Weight: 86 kg

DRUGS (1)
  1. HUMIRA [Suspect]
     Active Substance: ADALIMUMAB
     Indication: PSORIASIS
     Route: 058
     Dates: start: 201106, end: 201806

REACTIONS (8)
  - Benign prostatic hyperplasia [Unknown]
  - Diverticulum intestinal [Unknown]
  - Renal aplasia [Unknown]
  - Granuloma [Unknown]
  - Renal cancer metastatic [Unknown]
  - Diffuse large B-cell lymphoma stage I [Unknown]
  - Epstein-Barr virus associated lymphoma [Unknown]
  - Renal atrophy [Unknown]

NARRATIVE: CASE EVENT DATE: 201807
